FAERS Safety Report 10463489 (Version 2)
Quarter: 2014Q4

REPORT INFORMATION
  Report Type: Spontaneous
  Country: JP (occurrence: JP)
  Receive Date: 20140919
  Receipt Date: 20141006
  Transmission Date: 20150528
  Serious: Yes (Life-Threatening, Hospitalization)
  Sender: FDA-Public Use
  Company Number: JP-TEVA-510105ISR

PATIENT
  Age: 78 Year
  Sex: Male

DRUGS (8)
  1. TEICOPLANIN [Concomitant]
     Active Substance: TEICOPLANIN
     Dates: start: 20140730, end: 20140826
  2. TRISENOX [Suspect]
     Active Substance: ARSENIC TRIOXIDE
     Indication: ACUTE PROMYELOCYTIC LEUKAEMIA
     Dosage: 1 MILLIGRAM DAILY;
     Route: 042
     Dates: start: 20140728, end: 20140829
  3. FUNGUARD [Concomitant]
     Active Substance: MICAFUNGIN SODIUM
     Dates: start: 20140805, end: 20140913
  4. BENIDIPINE HYDROCHLORIDE [Concomitant]
     Active Substance: BENIDIPINE HYDROCHLORIDE
     Dates: start: 20140702
  5. AZACTAM [Concomitant]
     Active Substance: AZTREONAM
     Dates: start: 20140623, end: 20140901
  6. CANCIDAS [Concomitant]
     Active Substance: CASPOFUNGIN ACETATE
     Dates: start: 20140805, end: 20140913
  7. TAKEPRON [Concomitant]
     Active Substance: LANSOPRAZOLE
     Dates: start: 20140515
  8. AMIKACIN SULFATE. [Concomitant]
     Active Substance: AMIKACIN SULFATE
     Dates: start: 20140623, end: 20140901

REACTIONS (2)
  - Pseudomonas infection [Unknown]
  - Altered state of consciousness [Recovered/Resolved]

NARRATIVE: CASE EVENT DATE: 20140901
